APPROVED DRUG PRODUCT: SODIUM NITROPRUSSIDE
Active Ingredient: SODIUM NITROPRUSSIDE
Strength: 25MG/ML
Dosage Form/Route: INJECTABLE;INJECTION
Application: A208923 | Product #001
Applicant: AVET LIFESCIENCES PRIVATE LTD
Approved: Nov 8, 2022 | RLD: No | RS: No | Type: DISCN